FAERS Safety Report 6264734-9 (Version None)
Quarter: 2009Q3

REPORT INFORMATION
  Report Type: 
  Country: None (occurrence: None)
  Receive Date: 20090710
  Receipt Date: 20090707
  Transmission Date: 20100115
  Serious: Yes (Hospitalization)
  Sender: FDA-Public Use
  Company Number: US-BRISTOL-MYERS SQUIBB COMPANY-14694376

PATIENT
  Age: 57 Year
  Sex: Female
  Weight: 97 kg

DRUGS (3)
  1. CARBOPLATIN [Suspect]
     Indication: NON-SMALL CELL LUNG CANCER
     Dosage: INITIATED ON 31MAR09. 5TH COURSE: 28APR09 AND INTERRUPTED ON 05MAY09
     Dates: start: 20090428, end: 20090428
  2. TAXOL [Suspect]
     Indication: NON-SMALL CELL LUNG CANCER
     Dosage: INITIATED ON 31MAR09. 5TH COURSE: 28APR09 AND INTERRUPTED ON 05MAY09
     Dates: start: 20090428, end: 20090428
  3. RADIATION THERAPY [Suspect]
     Indication: NON-SMALL CELL LUNG CANCER
     Dosage: 1 DF= 49GY. NO OF FRACTION:25, NO OF ELASPED DAYS: 35. INITIATED ON 31MAR09.
     Dates: start: 20090331, end: 20090505

REACTIONS (7)
  - DYSPHAGIA [None]
  - DYSPNOEA [None]
  - HAEMOGLOBIN DECREASED [None]
  - LEUKOPENIA [None]
  - NEUTROPENIA [None]
  - OESOPHAGEAL PAIN [None]
  - OESOPHAGITIS [None]
